FAERS Safety Report 9276939 (Version 1)
Quarter: 2013Q2

REPORT INFORMATION
  Report Type: Other
  Country: GB (occurrence: GB)
  Receive Date: 20130507
  Receipt Date: 20130507
  Transmission Date: 20140414
  Serious: Yes (Death)
  Sender: FDA-Public Use
  Company Number: GB-WATSON-2013-07485

PATIENT
  Age: 49 Year
  Sex: Male
  Weight: 85 kg

DRUGS (3)
  1. MIRTAZAPINE (UNKNOWN) [Suspect]
     Indication: DEPRESSION
     Dosage: 30 MG, DAILY
     Route: 048
     Dates: start: 20130319, end: 20130412
  2. MIRTAZAPINE (UNKNOWN) [Suspect]
     Dosage: 45 MG, DAILY
     Route: 048
     Dates: start: 20130412, end: 20130415
  3. CITALOPRAM [Concomitant]
     Indication: DEPRESSION
     Dosage: UNKNOWN
     Route: 065
     Dates: end: 20130319

REACTIONS (1)
  - Completed suicide [Fatal]
